APPROVED DRUG PRODUCT: ROXICET 5/500
Active Ingredient: ACETAMINOPHEN; OXYCODONE HYDROCHLORIDE
Strength: 500MG;5MG
Dosage Form/Route: TABLET;ORAL
Application: A089775 | Product #001
Applicant: ROXANE LABORATORIES INC
Approved: Jan 12, 1989 | RLD: No | RS: No | Type: DISCN